FAERS Safety Report 13716095 (Version 2)
Quarter: 2017Q3

REPORT INFORMATION
  Report Type: Spontaneous
  Country: US (occurrence: US)
  Receive Date: 20170705
  Receipt Date: 20170714
  Transmission Date: 20171127
  Serious: No
  Sender: FDA-Public Use
  Company Number: US-ASTRAZENECA-2011BM08860

PATIENT
  Age: 40 Year
  Sex: Female
  Weight: 74.1 kg

DRUGS (10)
  1. BYETTA [Suspect]
     Active Substance: EXENATIDE
     Indication: METABOLIC SYNDROME
     Route: 058
     Dates: start: 201102
  2. BYETTA [Suspect]
     Active Substance: EXENATIDE
     Indication: METABOLIC SYNDROME
     Route: 058
  3. METFORMIN [Concomitant]
     Active Substance: METFORMIN HYDROCHLORIDE
     Route: 048
  4. FORTAMET [Concomitant]
     Active Substance: METFORMIN HYDROCHLORIDE
  5. PEPTO-BISMOL [Concomitant]
     Active Substance: BISMUTH SUBSALICYLATE
     Indication: NAUSEA
  6. VICTOZA [Concomitant]
     Active Substance: LIRAGLUTIDE
  7. GLUMETZA [Concomitant]
     Active Substance: METFORMIN HYDROCHLORIDE
     Route: 048
  8. BYDUREON [Suspect]
     Active Substance: EXENATIDE
     Indication: METABOLIC SYNDROME
     Route: 058
     Dates: start: 20120316
  9. GLUMETZA [Concomitant]
     Active Substance: METFORMIN HYDROCHLORIDE
     Dosage: 2 TABLETS
     Route: 048
  10. VYVANSE [Concomitant]
     Active Substance: LISDEXAMFETAMINE DIMESYLATE
     Route: 048

REACTIONS (16)
  - Blister [Not Recovered/Not Resolved]
  - Drug intolerance [Unknown]
  - Myalgia [Unknown]
  - Off label use [Unknown]
  - Drug ineffective [Not Recovered/Not Resolved]
  - Vitamin B12 deficiency [Unknown]
  - Pruritus [Not Recovered/Not Resolved]
  - Nausea [Recovered/Resolved]
  - Rash [Not Recovered/Not Resolved]
  - Erythema [Not Recovered/Not Resolved]
  - Fatigue [Unknown]
  - Insurance issue [Unknown]
  - Product use in unapproved indication [Unknown]
  - Vitamin D deficiency [Unknown]
  - Polycystic ovaries [Unknown]
  - Hypoglycaemia [Unknown]

NARRATIVE: CASE EVENT DATE: 201102
